FAERS Safety Report 5176374-3 (Version None)
Quarter: 2006Q4

REPORT INFORMATION
  Report Type: 
  Country: None (occurrence: None)
  Receive Date: 20061207
  Receipt Date: 20061127
  Transmission Date: 20070319
  Serious: Yes (Other)
  Sender: FDA-Public Use
  Company Number: GXKR2006SG07673

PATIENT
  Age: 97 Year
  Sex: Female

DRUGS (2)
  1. CIPROFLOXACIN [Suspect]
     Indication: PNEUMONIA
     Dosage: ORAL
     Route: 048
  2. CEFTRIAXONE [Concomitant]

REACTIONS (8)
  - ANOREXIA [None]
  - BRONCHOPNEUMONIA [None]
  - CHILLS [None]
  - INFECTION MASKED [None]
  - PYREXIA [None]
  - TUBERCULOSIS [None]
  - URINARY TRACT INFECTION [None]
  - WEIGHT INCREASED [None]
